FAERS Safety Report 8887676 (Version 1)
Quarter: 2012Q4

REPORT INFORMATION
  Report Type: 
  Country: FR (occurrence: FR)
  Receive Date: 20121106
  Receipt Date: 20121106
  Transmission Date: 20130627
  Serious: Yes (Hospitalization)
  Sender: FDA-Public Use
  Company Number: FR-PFIZER INC-2012272361

PATIENT
  Age: 53 Year
  Sex: Female

DRUGS (5)
  1. ARTOTEC [Suspect]
     Indication: LOIN PAIN
     Dosage: UNK
     Route: 048
     Dates: start: 20120907, end: 20120917
  2. LEVOTHYROX [Concomitant]
  3. HYDROCORTISONE [Concomitant]
  4. FLORINEF [Concomitant]
  5. LUTERAN [Concomitant]

REACTIONS (4)
  - Pain [Recovered/Resolved]
  - Pyrexia [Recovered/Resolved]
  - Cholestasis [Recovered/Resolved]
  - Hepatocellular injury [Recovered/Resolved]
